FAERS Safety Report 7018897-8 (Version None)
Quarter: 2010Q3

REPORT INFORMATION
  Report Type: 
  Country: None (occurrence: None)
  Receive Date: 20100928
  Receipt Date: 20100921
  Transmission Date: 20110219
  Serious: Yes (Other)
  Sender: FDA-Public Use
  Company Number: GXKR2010DE10113

PATIENT
  Age: 11 Year
  Sex: Female

DRUGS (5)
  1. METHYLPREDNISOLONE 4MG TAB [Suspect]
     Indication: SJOGREN'S SYNDROME
     Dosage: PULSES
     Route: 065
  2. PREDNISOLONE (NGX) [Suspect]
     Indication: SJOGREN'S SYNDROME
     Route: 048
  3. PREDNISOLONE (NGX) [Suspect]
     Dosage: 0.5 MG/KG/DAY
  4. CYCLOPHOSPHAMIDE [Concomitant]
     Indication: SJOGREN'S SYNDROME
  5. HYDROXYCHLOROQUINE [Concomitant]
     Indication: SJOGREN'S SYNDROME

REACTIONS (3)
  - BACK PAIN [None]
  - EPIDURAL LIPOMATOSIS [None]
  - RADICULAR PAIN [None]
